FAERS Safety Report 5955634-X (Version None)
Quarter: 2008Q4

REPORT INFORMATION
  Report Type: 
  Country: None (occurrence: None)
  Receive Date: 20081117
  Receipt Date: 20081105
  Transmission Date: 20090506
  Serious: Yes (Hospitalization)
  Sender: FDA-Public Use
  Company Number: FR-PFIZER INC-2008093969

PATIENT
  Sex: Female

DRUGS (3)
  1. LYRICA [Suspect]
     Indication: NEURALGIA
  2. MORPHINE SULFATE INJ [Concomitant]
  3. KETOPROFEN [Concomitant]

REACTIONS (5)
  - ANAEMIA [None]
  - GENERAL PHYSICAL HEALTH DETERIORATION [None]
  - MALAISE [None]
  - ORTHOSTATIC HYPOTENSION [None]
  - URINARY TRACT INFECTION [None]
